FAERS Safety Report 8019157-9 (Version None)
Quarter: 2012Q1

REPORT INFORMATION
  Report Type: 
  Country: None (occurrence: None)
  Receive Date: 20120103
  Receipt Date: 20111229
  Transmission Date: 20120608
  Serious: Yes (Other)
  Sender: FDA-Public Use
  Company Number: US-BAYER-2011-102661

PATIENT
  Age: 17 Year
  Sex: Female

DRUGS (1)
  1. BEYAZ [Suspect]
     Indication: CONTRACEPTION
     Route: 048

REACTIONS (2)
  - TOXIC SHOCK SYNDROME [None]
  - STREPTOCOCCUS TEST POSITIVE [None]
